FAERS Safety Report 10101765 (Version 1)
Quarter: 2014Q2

REPORT INFORMATION
  Report Type: Spontaneous
  Country: US (occurrence: US)
  Receive Date: 20140424
  Receipt Date: 20140424
  Transmission Date: 20141212
  Serious: Yes (Other)
  Sender: FDA-Public Use
  Company Number: US-ASTRAZENECA-2014SE26834

PATIENT
  Age: 27422 Day
  Sex: Male
  Weight: 63 kg

DRUGS (15)
  1. SYMBICORT [Suspect]
     Indication: PRODUCT USED FOR UNKNOWN INDICATION
     Dosage: 2 PUFFS TWICE PER DAY
     Route: 055
  2. ELAVIL [Suspect]
     Indication: PRODUCT USED FOR UNKNOWN INDICATION
  3. BREO ELLIPTA [Suspect]
     Indication: CHRONIC OBSTRUCTIVE PULMONARY DISEASE
     Route: 065
     Dates: start: 20140211, end: 20140313
  4. DELTASONE [Suspect]
     Indication: PRODUCT USED FOR UNKNOWN INDICATION
     Route: 048
  5. SPIRIVA [Suspect]
     Indication: PRODUCT USED FOR UNKNOWN INDICATION
     Route: 055
  6. MUCOMYST [Suspect]
     Indication: PRODUCT USED FOR UNKNOWN INDICATION
     Dosage: FOUR TIMES PER DAY
  7. TYLENOL [Concomitant]
  8. PROVENTIL [Concomitant]
  9. LASIX [Concomitant]
  10. MUCINEX [Concomitant]
  11. NORCO [Concomitant]
  12. NAPROSYN [Concomitant]
  13. ACIPHEX [Concomitant]
  14. OCEAN [Concomitant]
  15. METHOTREXATE [Concomitant]

REACTIONS (16)
  - Spinal compression fracture [Unknown]
  - Pneumonia [Unknown]
  - Pulmonary mass [Unknown]
  - Lung neoplasm malignant [Unknown]
  - Bronchial carcinoma [Unknown]
  - Pulmonary mycosis [Unknown]
  - Vision blurred [Recovered/Resolved]
  - Dyspnoea [Not Recovered/Not Resolved]
  - Osteoporosis [Unknown]
  - Back pain [Unknown]
  - Sputum discoloured [Unknown]
  - Hypoxia [Unknown]
  - Musculoskeletal chest pain [Unknown]
  - Forced expiratory volume decreased [Unknown]
  - Anxiety [Recovered/Resolved]
  - Cough [Unknown]
